FAERS Safety Report 6851927-2 (Version None)
Quarter: 2010Q3

REPORT INFORMATION
  Report Type: 
  Country: None (occurrence: None)
  Receive Date: 20100717
  Receipt Date: 20080405
  Transmission Date: 20110219
  Serious: Yes (Other)
  Sender: FDA-Public Use
  Company Number: US-PFIZER INC-2008008037

PATIENT
  Sex: Female
  Weight: 127.5 kg

DRUGS (4)
  1. CHANTIX [Suspect]
     Indication: SMOKING CESSATION THERAPY
     Dates: start: 20080101
  2. LAMICTAL [Concomitant]
     Dates: start: 20070801
  3. CLONAZEPAM [Concomitant]
     Dates: start: 20080101, end: 20080201
  4. SEROQUEL [Concomitant]
     Dates: start: 20080201

REACTIONS (3)
  - ANAEMIA [None]
  - INSOMNIA [None]
  - NIGHTMARE [None]
